FAERS Safety Report 13093943 (Version 2)
Quarter: 2017Q2

REPORT INFORMATION
  Report Type: Spontaneous
  Country: US (occurrence: US)
  Receive Date: 20170106
  Receipt Date: 20170411
  Transmission Date: 20170830
  Serious: Yes (Other)
  Sender: FDA-Public Use
  Company Number: US-DSJP-DSU-2017-100235

PATIENT

DRUGS (1)
  1. BENICAR [Suspect]
     Active Substance: OLMESARTAN MEDOXOMIL
     Indication: HYPERTENSION
     Dosage: 40 MG, UNK
     Dates: start: 2005, end: 2014

REACTIONS (10)
  - Diverticulitis [Not Recovered/Not Resolved]
  - Weight decreased [Unknown]
  - Diverticulum intestinal [Unknown]
  - Colitis [Unknown]
  - Gastrooesophageal reflux disease [Not Recovered/Not Resolved]
  - Depression [Unknown]
  - Polyp [Unknown]
  - Hiatus hernia [Not Recovered/Not Resolved]
  - Gastrointestinal wall thickening [Unknown]
  - Gastritis [Not Recovered/Not Resolved]

NARRATIVE: CASE EVENT DATE: 2010
